FAERS Safety Report 7652833 (Version 8)
Quarter: 2014Q2

REPORT INFORMATION
  Report Type: Report from Study
  Country: US (occurrence: US)
  Receive Date: 20101102
  Receipt Date: 20140508
  Transmission Date: 20141212
  Serious: Yes (Hospitalization, Other)
  Sender: FDA-Public Use
  Company Number: US-BIOGENIDEC-2010BI037469

PATIENT
  Age: 37 Year
  Sex: Female

DRUGS (10)
  1. TYSABRI [Suspect]
     Indication: MULTIPLE SCLEROSIS
     Route: 042
     Dates: start: 20090806, end: 20101026
  2. TYSABRI [Suspect]
     Indication: MULTIPLE SCLEROSIS
     Route: 042
     Dates: start: 20110107, end: 20110816
  3. TYSABRI [Suspect]
     Indication: MULTIPLE SCLEROSIS
  4. PERCOCET [Concomitant]
     Indication: PAIN
     Route: 048
     Dates: start: 200608
  5. PERCOCET [Concomitant]
     Indication: PARAESTHESIA
     Route: 048
     Dates: start: 200608
  6. VALIUM [Concomitant]
     Indication: RESTLESS LEGS SYNDROME
     Route: 048
     Dates: start: 200603
  7. GABAPENTIN [Concomitant]
     Indication: PARAESTHESIA
     Dates: start: 200605
  8. DILANTIN [Concomitant]
     Indication: EPILEPSY
     Dates: start: 200612
  9. LEXAPRO [Concomitant]
     Indication: DEPRESSION
     Dates: start: 200711
  10. CITALOPRAM [Concomitant]
     Dates: start: 201008

REACTIONS (1)
  - Papillary thyroid cancer [Recovered/Resolved]
